FAERS Safety Report 6243900-2 (Version None)
Quarter: 2009Q2

REPORT INFORMATION
  Report Type: 
  Country: None (occurrence: None)
  Receive Date: 20090623
  Receipt Date: 20090609
  Transmission Date: 20091009
  Serious: Yes (Other)
  Sender: FDA-Public Use
  Company Number: US-1169817

PATIENT
  Age: 50 Year
  Sex: Female
  Weight: 107 kg

DRUGS (1)
  1. PREDNISOLONE ACETATE [Suspect]
     Indication: UVEITIS
     Dosage: 1 GTT OU TID OPHTHALMIC
     Route: 047
     Dates: start: 20090417

REACTIONS (4)
  - MYASTHENIA GRAVIS [None]
  - RETINAL DETACHMENT [None]
  - RETINAL TEAR [None]
  - WEIGHT DECREASED [None]
